FAERS Safety Report 21022369 (Version 5)
Quarter: 2022Q4

REPORT INFORMATION
  Report Type: Report from Study
  Country: US (occurrence: US)
  Receive Date: 20220629
  Receipt Date: 20221014
  Transmission Date: 20230112
  Serious: Yes (Death, Hospitalization, Other)
  Sender: FDA-Public Use
  Company Number: US-ABBVIE-22K-163-4450045-00

PATIENT
  Sex: Male
  Weight: 73 kg

DRUGS (12)
  1. VENCLEXTA [Suspect]
     Active Substance: VENETOCLAX
     Indication: Chronic lymphocytic leukaemia
     Dosage: WEEK 1?LAST ADMINISTRATION DATE: JUN 2022?FORM STRENGTH: 20MG
     Route: 048
     Dates: start: 20220606
  2. VENCLEXTA [Suspect]
     Active Substance: VENETOCLAX
     Indication: Chronic lymphocytic leukaemia
     Dosage: WEEK 2?LAST ADMINISTRATION DATE: JUN 2022?FORM STRENGTH: 50MG
     Route: 048
     Dates: start: 20220615
  3. VENCLEXTA [Suspect]
     Active Substance: VENETOCLAX
     Indication: Chronic lymphocytic leukaemia
     Dosage: WEEK 3?FORM STRENGTH: 400 MG
     Route: 048
     Dates: start: 202206
  4. VENCLEXTA [Suspect]
     Active Substance: VENETOCLAX
     Indication: Chronic lymphocytic leukaemia
     Dosage: FORM STRENGTH: 100MG?LAST ADMIN DATE: JUN 2022
     Route: 048
     Dates: start: 20220606
  5. IMBRUVICA [Suspect]
     Active Substance: IBRUTINIB
     Indication: Product used for unknown indication
     Route: 048
  6. RITUXIMAB [Concomitant]
     Active Substance: RITUXIMAB
     Indication: Product used for unknown indication
  7. ALLOPURINOL [Suspect]
     Active Substance: ALLOPURINOL
     Indication: Renal disorder
     Route: 065
  8. RITUXAN [Suspect]
     Active Substance: RITUXIMAB
     Indication: Product used for unknown indication
     Route: 065
  9. PFIZER-BIONTECH COVID-19 VACCINE [Concomitant]
     Active Substance: TOZINAMERAN
     Indication: COVID-19 immunisation
     Dosage: TIME INTERVAL: 1 TOTAL: FIRST SHOT
     Route: 030
     Dates: start: 2020, end: 2020
  10. PFIZER-BIONTECH COVID-19 VACCINE [Concomitant]
     Active Substance: TOZINAMERAN
     Indication: COVID-19 immunisation
     Dosage: TIME INTERVAL: 1 TOTAL: SECOND SHOT
     Route: 030
     Dates: start: 2020, end: 2020
  11. PFIZER-BIONTECH COVID-19 VACCINE [Concomitant]
     Active Substance: TOZINAMERAN
     Indication: COVID-19 immunisation
     Dosage: TIME INTERVAL: 1 TOTAL: BOOSTER SHOT
     Route: 030
     Dates: start: 2021, end: 2021
  12. PFIZER-BIONTECH COVID-19 VACCINE [Concomitant]
     Active Substance: TOZINAMERAN
     Indication: COVID-19 immunisation
     Dosage: TIME INTERVAL: TOTAL: BOOSTER SHOT
     Route: 030
     Dates: start: 2021, end: 2021

REACTIONS (11)
  - Chronic lymphocytic leukaemia [Fatal]
  - Pulmonary oedema [Fatal]
  - Respiratory disorder [Fatal]
  - Agitation [Fatal]
  - Nausea [Fatal]
  - Hepatic enzyme increased [Fatal]
  - Malaise [Fatal]
  - Asthenia [Fatal]
  - Product packaging difficult to open [Unknown]
  - Adverse drug reaction [Unknown]
  - Somnolence [Unknown]

NARRATIVE: CASE EVENT DATE: 20120101
